FAERS Safety Report 25806224 (Version 4)
Quarter: 2025Q4

REPORT INFORMATION
  Report Type: Spontaneous
  Country: JP (occurrence: JP)
  Receive Date: 20250916
  Receipt Date: 20251028
  Transmission Date: 20260118
  Serious: Yes (Other)
  Sender: AMGEN
  Company Number: JP-AMGEN-JPNSP2025170523

PATIENT
  Age: 7 Decade
  Sex: Female

DRUGS (3)
  1. BLINCYTO [Suspect]
     Active Substance: BLINATUMOMAB
     Indication: B precursor type acute leukaemia
     Dosage: 9 MICROGRAM, CONTINUING, 24HR DIV PICC
     Route: 040
     Dates: start: 20250825, end: 2025
  2. BLINCYTO [Suspect]
     Active Substance: BLINATUMOMAB
     Dosage: 28 MICROGRAM, CONTINUING, 24HR DIV PICC, DOSE INCREASED
     Route: 040
     Dates: start: 20250901, end: 2025
  3. FILGRASTIM [Suspect]
     Active Substance: FILGRASTIM
     Indication: White blood cell count decreased
     Dosage: UNK, QD
     Route: 065
     Dates: start: 20250828

REACTIONS (8)
  - White blood cell count decreased [Not Recovered/Not Resolved]
  - Disseminated intravascular coagulation [Not Recovered/Not Resolved]
  - Febrile neutropenia [Recovering/Resolving]
  - Cholecystitis [Not Recovered/Not Resolved]
  - Bile duct stone [Unknown]
  - Immune effector cell-associated neurotoxicity syndrome [Recovering/Resolving]
  - Therapeutic product effect decreased [Unknown]
  - Infusion site haemorrhage [Recovered/Resolved with Sequelae]

NARRATIVE: CASE EVENT DATE: 20250101
